FAERS Safety Report 6531836-9 (Version None)
Quarter: 2010Q1

REPORT INFORMATION
  Report Type: 
  Country: None (occurrence: None)
  Receive Date: 20100108
  Receipt Date: 20091020
  Transmission Date: 20100710
  Serious: Yes (Life-Threatening, Hospitalization, Other)
  Sender: FDA-Public Use
  Company Number: FR-BAYER-200936179GPV

PATIENT
  Age: 27 Year
  Sex: Female

DRUGS (3)
  1. ADALAT [Suspect]
     Indication: TOCOLYSIS
     Dosage: TOTAL DAILY DOSE: 20 MG  UNIT DOSE: 20 MG
     Route: 048
     Dates: start: 20090714, end: 20090715
  2. CELESTENE [Suspect]
     Indication: DRUG USE FOR UNKNOWN INDICATION
     Route: 065
     Dates: start: 20090713
  3. TRACTOCILE [Concomitant]
     Indication: TOCOLYSIS
     Dates: start: 20090713, end: 20090713

REACTIONS (6)
  - ACUTE PULMONARY OEDEMA [None]
  - ACUTE RESPIRATORY FAILURE [None]
  - ASPHYXIA [None]
  - DYSPNOEA [None]
  - HAEMOPTYSIS [None]
  - TACHYCARDIA [None]
